FAERS Safety Report 26144036 (Version 2)
Quarter: 2025Q4

REPORT INFORMATION
  Report Type: Spontaneous
  Country: TR (occurrence: TR)
  Receive Date: 20251211
  Receipt Date: 20251229
  Transmission Date: 20260118
  Serious: Yes (Hospitalization)
  Sender: SANOFI AVENTIS
  Company Number: TR-002147023-PHBS2004TR14364

PATIENT
  Age: 48 Year
  Sex: Male

DRUGS (5)
  1. PYRAZINAMIDE [Suspect]
     Active Substance: PYRAZINAMIDE
     Indication: Pulmonary tuberculosis
     Dosage: UNK
  2. RIFAMPIN [Concomitant]
     Active Substance: RIFAMPIN
     Indication: Pulmonary tuberculosis
     Dosage: UNK
  3. ISONIAZID [Concomitant]
     Active Substance: ISONIAZID
     Indication: Pulmonary tuberculosis
     Dosage: UNK
  4. ALLOPURINOL [Concomitant]
     Active Substance: ALLOPURINOL
     Indication: Hyperuricaemia
     Dosage: 300 MG, QD
  5. ALLOPURINOL [Concomitant]
     Active Substance: ALLOPURINOL
     Dosage: 150 MG, QD

REACTIONS (7)
  - Gouty arthritis [Recovered/Resolved]
  - Joint swelling [Recovered/Resolved]
  - Musculoskeletal stiffness [Recovered/Resolved]
  - Arthritis [Recovered/Resolved]
  - Arthralgia [Recovered/Resolved]
  - Erythema [Recovered/Resolved]
  - Skin exfoliation [Not Recovered/Not Resolved]
